FAERS Safety Report 7331382-9 (Version None)
Quarter: 2011Q1

REPORT INFORMATION
  Report Type: 
  Country: None (occurrence: None)
  Receive Date: 20110304
  Receipt Date: 20110302
  Transmission Date: 20110831
  Serious: Yes (Other)
  Sender: FDA-Public Use
  Company Number: CH-PFIZER INC-2010103075

PATIENT
  Sex: Female
  Weight: 0.79 kg

DRUGS (3)
  1. BELOC ZOK [Suspect]
     Indication: SECONDARY HYPERTENSION
     Dosage: 25 MG, 2X/DAY
     Route: 064
     Dates: start: 20100101
  2. ALDACTONE [Suspect]
     Indication: SECONDARY HYPERTENSION
     Dosage: UNK
     Route: 064
     Dates: start: 20100701
  3. ZANIDIP [Suspect]
     Indication: SECONDARY HYPERTENSION
     Dosage: 10 MG, 1X/DAY
     Route: 064
     Dates: start: 20100401

REACTIONS (8)
  - HYPERTENSION NEONATAL [None]
  - DRUG EXPOSURE DURING PREGNANCY [None]
  - NEONATAL RESPIRATORY DISTRESS SYNDROME [None]
  - PNEUMOTHORAX [None]
  - PREMATURE BABY [None]
  - ATRIAL SEPTAL DEFECT [None]
  - MATERNAL DRUGS AFFECTING FOETUS [None]
  - CAESAREAN SECTION [None]
